FAERS Safety Report 5767097-8 (Version None)
Quarter: 2008Q2

REPORT INFORMATION
  Report Type: 
  Country: None (occurrence: None)
  Receive Date: 20080609
  Receipt Date: 20080321
  Transmission Date: 20081010
  Serious: No
  Sender: FDA-Public Use
  Company Number: 002#1#2008-00082

PATIENT
  Sex: Male
  Weight: 95.2554 kg

DRUGS (6)
  1. NEUPRO [Suspect]
     Indication: DRUG USE FOR UNKNOWN INDICATION
     Dosage: 6MG/24H,1 IN 1 D,TRANSDERMAL
     Route: 062
  2. SINEMET [Concomitant]
  3. ASPIRIN [Concomitant]
  4. SIMVASTATIN [Concomitant]
  5. VITAMIN E [Concomitant]
  6. ASCORBIC ACID [Concomitant]

REACTIONS (1)
  - VITREOUS FLOATERS [None]
